FAERS Safety Report 15992187 (Version 2)
Quarter: 2019Q1

REPORT INFORMATION
  Report Type: Spontaneous
  Country: CN (occurrence: CN)
  Receive Date: 20190221
  Receipt Date: 20190306
  Transmission Date: 20190418
  Serious: Yes (Hospitalization)
  Sender: FDA-Public Use
  Company Number: PHHY2019CN041007

PATIENT
  Age: 73 Year
  Sex: Female

DRUGS (2)
  1. TOBRADEX [Suspect]
     Active Substance: DEXAMETHASONE\TOBRAMYCIN
     Indication: EYE INFLAMMATION
     Route: 047
  2. LEVOFLOXACIN. [Concomitant]
     Active Substance: LEVOFLOXACIN
     Indication: EYE INFLAMMATION
     Route: 047

REACTIONS (6)
  - Visual impairment [Unknown]
  - Pupillary disorder [Unknown]
  - Anterior chamber inflammation [Unknown]
  - Endophthalmitis [Recovering/Resolving]
  - Eye pain [Unknown]
  - Corneal oedema [Unknown]

NARRATIVE: CASE EVENT DATE: 20190125
